FAERS Safety Report 13414051 (Version 2)
Quarter: 2017Q4

REPORT INFORMATION
  Report Type: Spontaneous
  Country: US (occurrence: US)
  Receive Date: 20170406
  Receipt Date: 20171121
  Transmission Date: 20180320
  Serious: No
  Sender: FDA-Public Use
  Company Number: US-JNJFOC-20170318175

PATIENT
  Sex: Male

DRUGS (18)
  1. RISPERDAL [Suspect]
     Active Substance: RISPERIDONE
     Indication: PSYCHOTIC DISORDER
     Dosage: VARYING DOSES OF 1 MG, 3 MG AND 4 MG OF VARIOUS FREQUENCIES
     Route: 048
     Dates: start: 20130217, end: 20130710
  2. RISPERIDONE. [Suspect]
     Active Substance: RISPERIDONE
     Indication: SCHIZOAFFECTIVE DISORDER DEPRESSIVE TYPE
     Dosage: VARYING DOSES OF 1MG, 2 MG, 3MG, 4 MG OF VARIOUS FREQUENCIES
     Route: 048
     Dates: start: 20100930, end: 20131001
  3. INVEGA [Suspect]
     Active Substance: PALIPERIDONE
     Indication: SCHIZOAFFECTIVE DISORDER DEPRESSIVE TYPE
     Route: 048
     Dates: start: 20150201, end: 20160111
  4. INVEGA [Suspect]
     Active Substance: PALIPERIDONE
     Indication: SCHIZOAFFECTIVE DISORDER DEPRESSIVE TYPE
     Route: 048
     Dates: end: 20140102
  5. RISPERDAL [Suspect]
     Active Substance: RISPERIDONE
     Indication: SCHIZOAFFECTIVE DISORDER DEPRESSIVE TYPE
     Dosage: VARYING DOSES OF 1 MG, 3 MG AND 4 MG OF VARIOUS FREQUENCIES
     Route: 048
     Dates: start: 20130217, end: 20130710
  6. RISPERDAL [Suspect]
     Active Substance: RISPERIDONE
     Indication: PSYCHOTIC DISORDER
     Dosage: VARYING DOSES OF 2 MG, 3 MG AND 4 MG OF VARIOUS FREQUENCIES
     Route: 048
     Dates: start: 20070126, end: 20100930
  7. INVEGA [Suspect]
     Active Substance: PALIPERIDONE
     Indication: SCHIZOAFFECTIVE DISORDER DEPRESSIVE TYPE
     Dosage: VARYING DOSES OF 3 MG AND 6 MG
     Route: 048
     Dates: start: 20131119, end: 20131125
  8. INVEGA [Suspect]
     Active Substance: PALIPERIDONE
     Indication: PSYCHOTIC DISORDER
     Route: 048
     Dates: start: 20150201, end: 20160111
  9. RISPERDAL [Suspect]
     Active Substance: RISPERIDONE
     Indication: SCHIZOAFFECTIVE DISORDER DEPRESSIVE TYPE
     Route: 048
     Dates: start: 20120510, end: 20131119
  10. INVEGA [Suspect]
     Active Substance: PALIPERIDONE
     Indication: PSYCHOTIC DISORDER
     Route: 048
     Dates: end: 20140102
  11. RISPERIDONE M-TAB [Suspect]
     Active Substance: RISPERIDONE
     Indication: PSYCHOTIC DISORDER
     Dosage: 1 MG, 1.5 MG AND 2 MG OF VARIOUS FREQUENCIES
     Route: 048
     Dates: start: 20120531, end: 20131119
  12. RISPERDAL [Suspect]
     Active Substance: RISPERIDONE
     Indication: PSYCHOTIC DISORDER
     Route: 048
     Dates: start: 20120510, end: 20131119
  13. RISPERIDONE. [Suspect]
     Active Substance: RISPERIDONE
     Indication: PSYCHOTIC DISORDER
     Dosage: VARYING DOSES OF 1MG, 2 MG, 3MG, 4 MG OF VARIOUS FREQUENCIES
     Route: 048
     Dates: start: 20100930, end: 20131001
  14. RISPERIDONE M-TAB [Suspect]
     Active Substance: RISPERIDONE
     Indication: SCHIZOAFFECTIVE DISORDER DEPRESSIVE TYPE
     Dosage: 1 MG, 1.5 MG AND 2 MG OF VARIOUS FREQUENCIES
     Route: 048
     Dates: start: 20120531, end: 20131119
  15. INVEGA [Suspect]
     Active Substance: PALIPERIDONE
     Indication: PSYCHOTIC DISORDER
     Dosage: VARYING DOSES OF 3 MG AND 6 MG
     Route: 048
     Dates: start: 20131119, end: 20131125
  16. INVEGA SUSTENNA [Suspect]
     Active Substance: PALIPERIDONE PALMITATE
     Indication: SCHIZOAFFECTIVE DISORDER DEPRESSIVE TYPE
     Dosage: VARYING DOSES OF 117 MG, 156 MG, 234 MG
     Route: 030
     Dates: start: 20131125, end: 20160809
  17. INVEGA SUSTENNA [Suspect]
     Active Substance: PALIPERIDONE PALMITATE
     Indication: PSYCHOTIC DISORDER
     Dosage: VARYING DOSES OF 117 MG, 156 MG, 234 MG
     Route: 030
     Dates: start: 20131125, end: 20160809
  18. RISPERDAL [Suspect]
     Active Substance: RISPERIDONE
     Indication: SCHIZOAFFECTIVE DISORDER DEPRESSIVE TYPE
     Dosage: VARYING DOSES OF 2 MG, 3 MG AND 4 MG OF VARIOUS FREQUENCIES
     Route: 048
     Dates: start: 20070126, end: 20100930

REACTIONS (2)
  - Emotional disorder [Unknown]
  - Gynaecomastia [Unknown]
